FAERS Safety Report 25082099 (Version 1)
Quarter: 2025Q1

REPORT INFORMATION
  Report Type: Report from Study
  Country: CA (occurrence: CA)
  Receive Date: 20250317
  Receipt Date: 20250317
  Transmission Date: 20250409
  Serious: Yes (Other)
  Sender: TAKEDA
  Company Number: CA-TAKEDA-2025TUS024732

PATIENT
  Sex: Female

DRUGS (3)
  1. VEDOLIZUMAB [Suspect]
     Active Substance: VEDOLIZUMAB
     Indication: Crohn^s disease
  2. BUDESONIDE [Concomitant]
     Active Substance: BUDESONIDE
  3. Salofalk [Concomitant]

REACTIONS (4)
  - Haematochezia [Recovering/Resolving]
  - Abdominal pain lower [Recovering/Resolving]
  - Frequent bowel movements [Recovering/Resolving]
  - Dizziness [Recovering/Resolving]
